FAERS Safety Report 5781012-2 (Version None)
Quarter: 2008Q2

REPORT INFORMATION
  Report Type: 
  Country: None (occurrence: None)
  Receive Date: 20080620
  Receipt Date: 20080610
  Transmission Date: 20081010
  Serious: Yes (Hospitalization, Disabling, Other)
  Sender: FDA-Public Use
  Company Number: US-ABBOTT-08P-163-0456248-00

PATIENT
  Sex: Female

DRUGS (17)
  1. RITONAVIR SOFT GELATIN CAPSULES [Suspect]
     Indication: ACQUIRED IMMUNODEFICIENCY SYNDROME
     Route: 048
     Dates: start: 20080317
  2. TRUVADA [Interacting]
     Indication: ACQUIRED IMMUNODEFICIENCY SYNDROME
     Route: 048
     Dates: start: 20080310, end: 20080321
  3. ATAZANAVIR [Interacting]
     Indication: ACQUIRED IMMUNODEFICIENCY SYNDROME
     Route: 048
     Dates: start: 20080317
  4. VALGANCICLOVIR HCL [Interacting]
     Indication: CYTOMEGALOVIRUS CHORIORETINITIS
     Route: 048
     Dates: start: 20080223
  5. VALGANCICLOVIR HCL [Interacting]
  6. BACTRIM [Interacting]
     Indication: ANTIFUNGAL PROPHYLAXIS
     Route: 048
     Dates: start: 20080228
  7. FILGRASTIM [Concomitant]
     Indication: NEUTROPENIA
     Route: 058
     Dates: start: 20080310, end: 20080320
  8. AZITHROMYCIN [Concomitant]
     Indication: OPPORTUNISTIC INFECTION PROPHYLAXIS
     Route: 048
     Dates: start: 20080220
  9. AZITHROMYCIN [Concomitant]
  10. ONDANSETRON [Concomitant]
     Indication: NAUSEA
     Route: 048
     Dates: start: 20080220
  11. CLONAZEPAM [Concomitant]
     Indication: ANXIETY
     Route: 048
     Dates: start: 20080228
  12. LAMIVUDINE [Concomitant]
     Indication: ANTIRETROVIRAL THERAPY
  13. ABACAVIR [Concomitant]
     Indication: ANTIRETROVIRAL THERAPY
  14. EFAVIRENZ [Concomitant]
     Indication: ANTIRETROVIRAL THERAPY
  15. DAPSONE [Concomitant]
     Indication: DRUG USE FOR UNKNOWN INDICATION
  16. FOSCARNET [Concomitant]
     Indication: CYTOMEGALOVIRUS CHORIORETINITIS
     Dosage: INTRAVITREAL
  17. GANCICLOVIR [Concomitant]
     Indication: CYTOMEGALOVIRUS CHORIORETINITIS
     Route: 042

REACTIONS (4)
  - BLOOD CREATININE INCREASED [None]
  - DRUG INTERACTION [None]
  - GLOMERULAR FILTRATION RATE DECREASED [None]
  - RENAL TUBULAR NECROSIS [None]
